FAERS Safety Report 6237247 (Version 3)
Quarter: 2019Q1

REPORT INFORMATION
  Report Type: Spontaneous
  Country: FR (occurrence: FR)
  Receive Date: 20070213
  Receipt Date: 20190131
  Transmission Date: 20190418
  Serious: Yes (Hospitalization, Other)
  Sender: FDA-Public Use
  Company Number: FR-GILEAD-2007-0011170

PATIENT
  Age: 40 Year
  Sex: Female

DRUGS (2)
  1. ZEFFIX [Concomitant]
     Active Substance: LAMIVUDINE
     Dates: start: 20060131
  2. HEPSERA [Suspect]
     Active Substance: ADEFOVIR DIPIVOXIL
     Indication: HEPATITIS B
     Route: 048
     Dates: start: 20060201, end: 20060607

REACTIONS (2)
  - Lactic acidosis [Recovered/Resolved]
  - Dyspnoea [Unknown]

NARRATIVE: CASE EVENT DATE: 20060606
